FAERS Safety Report 6261912-X (Version None)
Quarter: 2009Q3

REPORT INFORMATION
  Report Type: 
  Country: None (occurrence: None)
  Receive Date: 20090709
  Receipt Date: 20090701
  Transmission Date: 20100115
  Serious: Yes (Hospitalization)
  Sender: FDA-Public Use
  Company Number: B0579894A

PATIENT
  Sex: Male
  Weight: 11 kg

DRUGS (1)
  1. CLAVAMOX [Suspect]
     Indication: OTITIS MEDIA ACUTE
     Route: 048
     Dates: start: 20080705

REACTIONS (1)
  - ERYTHEMA MULTIFORME [None]
